FAERS Safety Report 26179799 (Version 1)
Quarter: 2025Q4

REPORT INFORMATION
  Report Type: Spontaneous
  Country: US (occurrence: None)
  Receive Date: 20251218
  Receipt Date: 20251218
  Transmission Date: 20260117
  Serious: Yes (Other)
  Sender: FDA-CTU
  Company Number: None

PATIENT
  Age: 58 Year
  Sex: Female

DRUGS (1)
  1. KEVZARA [Suspect]
     Active Substance: SARILUMAB
     Indication: Polymyalgia rheumatica
     Dosage: 200 MG EVERY 2 WEEKS SUBCUTNEOUS
     Route: 058
     Dates: start: 20250827, end: 20251218

REACTIONS (3)
  - Injection site reaction [None]
  - Urticaria [None]
  - Injection site pruritus [None]

NARRATIVE: CASE EVENT DATE: 20251218
